FAERS Safety Report 7197251-2 (Version None)
Quarter: 2010Q4

REPORT INFORMATION
  Report Type: 
  Country: None (occurrence: None)
  Receive Date: 20101224
  Receipt Date: 20101208
  Transmission Date: 20110411
  Serious: Yes (Hospitalization, Other)
  Sender: FDA-Public Use
  Company Number: FR-PFIZER INC-2010178251

PATIENT
  Age: 74 Year
  Sex: Female

DRUGS (6)
  1. HYDROXYZINE HCL [Suspect]
     Indication: PREMEDICATION
     Dosage: 100 MG, DAILY
     Route: 048
  2. PRAMIPEXOLE [Suspect]
     Indication: RESTLESS LEGS SYNDROME
     Dosage: 0.09 MG AT 6 PM AND 0.18 AT 10 PM
  3. PROPOFOL [Suspect]
     Dosage: 100 MG, DAILY
  4. MIDAZOLAM [Suspect]
     Dosage: 5 MG, DAILY
  5. SUFENTANIL [Suspect]
     Dosage: 20 UG, DAILY
  6. DROPERIDOL [Suspect]
     Dosage: 0.5 MG, DAILY

REACTIONS (6)
  - INSOMNIA [None]
  - RESTLESS LEGS SYNDROME [None]
  - SCAR [None]
  - SUBCUTANEOUS HAEMATOMA [None]
  - SYSTOLIC HYPERTENSION [None]
  - TACHYCARDIA [None]
